FAERS Safety Report 8406866-2 (Version None)
Quarter: 2012Q2

REPORT INFORMATION
  Report Type: 
  Country: None (occurrence: None)
  Receive Date: 20120604
  Receipt Date: 20120530
  Transmission Date: 20120825
  Serious: Yes (Other)
  Sender: FDA-Public Use
  Company Number: US-PFIZER INC-2012130750

PATIENT
  Sex: Female
  Weight: 54.5 kg

DRUGS (5)
  1. ALPRAZOLAM [Concomitant]
     Indication: ANXIETY
     Dosage: UNK
  2. PAXIL [Concomitant]
     Indication: DEPRESSION
     Dosage: UNK
  3. ALPRAZOLAM [Concomitant]
     Indication: PANIC ATTACK
  4. LIPITOR [Suspect]
     Indication: BLOOD CHOLESTEROL INCREASED
     Dosage: 10 MG, 1X/DAY
     Route: 048
     Dates: start: 20010101, end: 20010101
  5. LIPITOR [Suspect]
     Dosage: UNK

REACTIONS (1)
  - MYALGIA [None]
